FAERS Safety Report 8555616-8 (Version None)
Quarter: 2012Q3

REPORT INFORMATION
  Report Type: 
  Country: None (occurrence: None)
  Receive Date: 20120731
  Receipt Date: 20111026
  Transmission Date: 20120928
  Serious: No
  Sender: FDA-Public Use
  Company Number: US-ASTRAZENECA-2011SE00572

PATIENT
  Age: 53 Year
  Sex: Male

DRUGS (1)
  1. SEROQUEL XR [Suspect]
     Route: 048

REACTIONS (6)
  - INCORRECT DOSE ADMINISTERED [None]
  - DRUG DOSE OMISSION [None]
  - INSOMNIA [None]
  - ATTENTION DEFICIT/HYPERACTIVITY DISORDER [None]
  - DISTURBANCE IN ATTENTION [None]
  - MALAISE [None]
